FAERS Safety Report 11773923 (Version 1)
Quarter: 2015Q4

REPORT INFORMATION
  Report Type: Spontaneous
  Country: US (occurrence: US)
  Receive Date: 20151124
  Receipt Date: 20151124
  Transmission Date: 20160304
  Serious: No
  Sender: FDA-Public Use
  Company Number: US-AKRON, INC.-1044574

PATIENT
  Age: 71 Year
  Sex: Male
  Weight: 84.09 kg

DRUGS (1)
  1. DORZOLAMIDE [Suspect]
     Active Substance: DORZOLAMIDE
     Indication: GLAUCOMA
     Route: 047
     Dates: start: 2015

REACTIONS (2)
  - Dysuria [Unknown]
  - Prostatitis [Unknown]
